FAERS Safety Report 9927840 (Version 1)
Quarter: 2014Q1

REPORT INFORMATION
  Report Type: Spontaneous
  Country: KR (occurrence: None)
  Receive Date: 20140220
  Receipt Date: 20140220
  Transmission Date: 20141002
  Serious: Yes (Disabling, Other)
  Sender: FDA-Public Use
  Company Number: 2014SK0067

PATIENT
  Sex: Male

DRUGS (3)
  1. AMMONAPS [Suspect]
     Dates: start: 2008
  2. NATRIUM BENZOATE (SODIUM BENZOATE) [Concomitant]
  3. ARGININ (ARGININE HYDROCHLORIDE) [Concomitant]

REACTIONS (6)
  - Hyperammonaemic encephalopathy [None]
  - Pylorospasm [None]
  - Infection [None]
  - Vomiting [None]
  - Post procedural complication [None]
  - Gastrooesophageal reflux disease [None]
